FAERS Safety Report 8661811 (Version 4)
Quarter: 2012Q4

REPORT INFORMATION
  Report Type: 
  Country: JP (occurrence: JP)
  Receive Date: 20120712
  Receipt Date: 20121102
  Transmission Date: 20130627
  Serious: Yes (Hospitalization, Other)
  Sender: FDA-Public Use
  Company Number: JP-ELI_LILLY_AND_COMPANY-JP201207002082

PATIENT
  Age: 82 Year
  Sex: Female

DRUGS (2)
  1. FORTEO [Suspect]
     Dosage: UNK
     Route: 058
  2. FORTEO [Suspect]
     Dosage: UNK
     Route: 058
     Dates: end: 20120815

REACTIONS (13)
  - Gait disturbance [Recovered/Resolved]
  - Spinal column stenosis [Unknown]
  - Fracture pain [Unknown]
  - Hypoaesthesia [Unknown]
  - Palpitations [Unknown]
  - Decreased appetite [Unknown]
  - Headache [Unknown]
  - Thirst [Unknown]
  - Tongue dry [Unknown]
  - Constipation [Unknown]
  - Weight decreased [Unknown]
  - Abdominal pain upper [Unknown]
  - Abdominal distension [Unknown]
